FAERS Safety Report 4889389-7 (Version None)
Quarter: 2006Q1

REPORT INFORMATION
  Report Type: 
  Country: None (occurrence: None)
  Receive Date: 20060120
  Receipt Date: 20060120
  Transmission Date: 20060701
  Serious: Yes (Hospitalization)
  Sender: FDA-Public Use
  Company Number: None

PATIENT
  Age: 66 Year
  Sex: Female
  Weight: 63.5036 kg

DRUGS (1)
  1. ADVAIR DISKUS 100/50 [Suspect]

REACTIONS (8)
  - CHILLS [None]
  - COUGH [None]
  - DIZZINESS [None]
  - DYSPNOEA [None]
  - INCONTINENCE [None]
  - LOSS OF CONSCIOUSNESS [None]
  - NAUSEA [None]
  - VOMITING [None]
